FAERS Safety Report 5215931-2 (Version None)
Quarter: 2007Q1

REPORT INFORMATION
  Report Type: 
  Country: None (occurrence: None)
  Receive Date: 20070123
  Receipt Date: 20070112
  Transmission Date: 20070707
  Serious: Yes (Hospitalization, Other)
  Sender: FDA-Public Use
  Company Number: IT-ELI_LILLY_AND_COMPANY-IT200701003271

PATIENT
  Age: 67 Year
  Sex: Female
  Weight: 46 kg

DRUGS (7)
  1. FORTEO [Suspect]
     Indication: OSTEOPOROSIS
     Dosage: 20 UG, DAILY (1/D)
     Route: 058
     Dates: start: 20060501, end: 20070105
  2. LANOXIN [Concomitant]
     Indication: ATRIAL FIBRILLATION
     Dates: start: 19970101
  3. LASIX [Concomitant]
     Indication: ATRIAL FIBRILLATION
     Dates: start: 19970101
  4. ISOPTIN /GFR/ [Concomitant]
     Indication: ATRIAL FIBRILLATION
     Dates: start: 19970101
  5. SINTROM /NET/ [Concomitant]
     Indication: ATRIAL FIBRILLATION
     Dates: start: 19970101
  6. CALCIUM [Concomitant]
  7. VITAMIN D [Concomitant]

REACTIONS (3)
  - ANAEMIA [None]
  - PLATELET COUNT DECREASED [None]
  - PYREXIA [None]
